FAERS Safety Report 21355189 (Version 3)
Quarter: 2022Q4

REPORT INFORMATION
  Report Type: Spontaneous
  Country: US (occurrence: US)
  Receive Date: 20220920
  Receipt Date: 20221229
  Transmission Date: 20230113
  Serious: Yes (Hospitalization, Other)
  Sender: FDA-Public Use
  Company Number: US-BRISTOL-MYERS SQUIBB COMPANY-2022-107426

PATIENT
  Age: 73 Year
  Sex: Male

DRUGS (3)
  1. POMALYST [Suspect]
     Active Substance: POMALIDOMIDE
     Indication: Plasma cell myeloma in remission
     Dosage: TAKE 1 CAPSULE ON DAYS 1-21 OF EACH 28 DAY CYCLE. TAKE WHOLE WITH WATER, W OR W/OUT FOOD AT THE SAME
     Dates: start: 20220726
  2. POMALYST [Suspect]
     Active Substance: POMALIDOMIDE
     Dosage: TAKE 1 CAPSULE ON DAYS 1-21 OF EACH 28 DAY CYCLE. TAKE WHOLE WITH WATER, W OR W/OUT FOOD AT THE SAME
  3. POMALYST [Suspect]
     Active Substance: POMALIDOMIDE
     Dosage: DOSE REDUCED

REACTIONS (7)
  - Peripheral swelling [Not Recovered/Not Resolved]
  - Pyrexia [Unknown]
  - Rash [Not Recovered/Not Resolved]
  - Diarrhoea [Not Recovered/Not Resolved]
  - Erythema [Unknown]
  - Neuropathy peripheral [Unknown]
  - Cough [Unknown]

NARRATIVE: CASE EVENT DATE: 20220909
